FAERS Safety Report 19492929 (Version 1)
Quarter: 2021Q3

REPORT INFORMATION
  Report Type: Spontaneous
  Country: IE (occurrence: IE)
  Receive Date: 20210705
  Receipt Date: 20210705
  Transmission Date: 20211014
  Serious: Yes (Other)
  Sender: FDA-Public Use
  Company Number: IE-ROCHE-2859231

PATIENT
  Age: 70 Year
  Sex: Female

DRUGS (3)
  1. METHYLPREDNISOLONE. [Concomitant]
     Active Substance: METHYLPREDNISOLONE
     Route: 042
     Dates: start: 20200810
  2. RITUXIMAB. [Suspect]
     Active Substance: RITUXIMAB
     Indication: PRODUCT USED FOR UNKNOWN INDICATION
     Dosage: 1000 MG INFUSION IN 500 MLS NORMAL SALINE INFUSION, 250 MGS INFUSED.
     Route: 041
     Dates: start: 20200810
  3. CHLORPHENAMINE [Concomitant]
     Active Substance: CHLORPHENIRAMINE MALEATE
     Dosage: 10MG
     Route: 042
     Dates: start: 20200810

REACTIONS (4)
  - Dysphagia [Unknown]
  - Hypertension [Unknown]
  - Infusion site rash [Unknown]
  - Throat tightness [Unknown]

NARRATIVE: CASE EVENT DATE: 20200810
